FAERS Safety Report 12256920 (Version 1)
Quarter: 2016Q2

REPORT INFORMATION
  Report Type: Spontaneous
  Country: US (occurrence: None)
  Receive Date: 20160411
  Receipt Date: 20160411
  Transmission Date: 20160815
  Serious: No
  Sender: FDA-Public Use
  Company Number: None

PATIENT
  Age: 64 Year
  Sex: Female
  Weight: 71.22 kg

DRUGS (3)
  1. VITAME [Concomitant]
  2. MYRBETRIQ [Suspect]
     Active Substance: MIRABEGRON
     Indication: HYPERTONIC BLADDER
     Route: 048
     Dates: start: 20160301, end: 20160408
  3. TRIPHALA [Concomitant]

REACTIONS (2)
  - Dry skin [None]
  - Facial pain [None]

NARRATIVE: CASE EVENT DATE: 20160401
